FAERS Safety Report 18882045 (Version 1)
Quarter: 2021Q1

REPORT INFORMATION
  Report Type: Spontaneous
  Country: GB (occurrence: GB)
  Receive Date: 20210211
  Receipt Date: 20210211
  Transmission Date: 20210420
  Serious: Yes (Other)
  Sender: FDA-Public Use
  Company Number: GB-MYLANLABS-2021M1008413

PATIENT
  Sex: Male

DRUGS (6)
  1. FLUCLOXACILLIN [Concomitant]
     Active Substance: FLUCLOXACILLIN
     Dosage: 4 DOSAGE FORM, QD
  2. NITROFURANTOIN. [Concomitant]
     Active Substance: NITROFURANTOIN
     Dosage: 1 DOSAGE FORM, BID
  3. CLOZARIL [Suspect]
     Active Substance: CLOZAPINE
     Indication: SCHIZOPHRENIA
     Dosage: 300MG (MORNING 1X100MG AND EVENING 2X100MG)
  4. CLOZARIL [Suspect]
     Active Substance: CLOZAPINE
     Indication: SCHIZOPHRENIA
     Dosage: 125MG (MORNING 2X25MG AND EVENING 3X25MG)
  5. ESCITALOPRAM [Concomitant]
     Active Substance: ESCITALOPRAM OXALATE
     Dosage: 2.5 MILLIGRAM, QD
  6. DIAZEPAM. [Concomitant]
     Active Substance: DIAZEPAM
     Dosage: 5MILLIGRAM (2MG AFTERNOON, 1MG EVENING + 2MG BEDTIME)

REACTIONS (11)
  - Blood urine present [Unknown]
  - Infection [Unknown]
  - Abdominal distension [Unknown]
  - Restlessness [Unknown]
  - Dizziness [Unknown]
  - Palpitations [Unknown]
  - Seizure [Unknown]
  - Constipation [Unknown]
  - Tremor [Unknown]
  - Oculogyric crisis [Unknown]
  - Bowel movement irregularity [Unknown]
